FAERS Safety Report 6406948-0 (Version None)
Quarter: 2009Q4

REPORT INFORMATION
  Report Type: 
  Country: None (occurrence: None)
  Receive Date: 20091020
  Receipt Date: 20091019
  Transmission Date: 20100525
  Serious: Yes (Other)
  Sender: FDA-Public Use
  Company Number: US-TEVA-212675USA

PATIENT

DRUGS (3)
  1. LEUCOVORIN CALCIUM TABLET 5MG [Suspect]
  2. OXALIPLATIN [Suspect]
  3. FLUOROURACIL [Suspect]

REACTIONS (1)
  - REVERSIBLE POSTERIOR LEUKOENCEPHALOPATHY SYNDROME [None]
